FAERS Safety Report 24058100 (Version 3)
Quarter: 2024Q3

REPORT INFORMATION
  Report Type: Spontaneous
  Country: FR (occurrence: FR)
  Receive Date: 20240707
  Receipt Date: 20240805
  Transmission Date: 20241017
  Serious: Yes (Life-Threatening)
  Sender: JOHNSON AND JOHNSON
  Company Number: None

PATIENT
  Age: 13 Day
  Sex: Male
  Weight: 4 kg

DRUGS (2)
  1. STELARA [Suspect]
     Active Substance: USTEKINUMAB
     Indication: Colitis ulcerative
     Route: 058
     Dates: end: 20240428
  2. CORTISONE [Concomitant]
     Active Substance: CORTISONE
     Dates: start: 20240305

REACTIONS (13)
  - Beta haemolytic streptococcal infection [Recovered/Resolved]
  - Cardiogenic shock [Recovered/Resolved]
  - Foetal exposure during pregnancy [Unknown]
  - Maternal exposure during breast feeding [Unknown]
  - Malaise [Unknown]
  - Hypotonia [Unknown]
  - Cyanosis [Unknown]
  - Cardiomegaly [Unknown]
  - Blood pressure immeasurable [Unknown]
  - Capillary nail refill test abnormal [Unknown]
  - Altered state of consciousness [Unknown]
  - Tachypnoea [Unknown]
  - Dyspnoea [Unknown]

NARRATIVE: CASE EVENT DATE: 20240511
